FAERS Safety Report 14182352 (Version 3)
Quarter: 2017Q4

REPORT INFORMATION
  Report Type: Spontaneous
  Country: IT (occurrence: IT)
  Receive Date: 20171113
  Receipt Date: 20171113
  Transmission Date: 20180321
  Serious: Yes (Life-Threatening, Hospitalization, Other)
  Sender: FDA-Public Use
  Company Number: IT-ALEMBIC PHARMACUETICALS LIMITED-2017SCAL000893

PATIENT

DRUGS (6)
  1. TENOFOVIR [Concomitant]
     Active Substance: TENOFOVIR
     Indication: HIV INFECTION
     Dosage: 245 MG, QD
  2. LINEZOLID. [Suspect]
     Active Substance: LINEZOLID
     Indication: STAPHYLOCOCCAL INFECTION
     Dosage: 600 MG, BID
  3. LAMIVUDINE. [Concomitant]
     Active Substance: LAMIVUDINE
     Indication: HIV INFECTION
     Dosage: 300 MG, QD
  4. RITONAVIR. [Concomitant]
     Active Substance: RITONAVIR
     Indication: HIV INFECTION
     Dosage: 100 MG, QD
  5. METHADONE [Interacting]
     Active Substance: METHADONE HYDROCHLORIDE
     Indication: DRUG DEPENDENCE
     Dosage: 40 MG, QD
  6. DARUNAVIR [Concomitant]
     Active Substance: DARUNAVIR
     Indication: HIV INFECTION
     Dosage: 800 MG, QD

REACTIONS (14)
  - Drug interaction [Unknown]
  - Speech disorder [Recovering/Resolving]
  - Pyrexia [Recovering/Resolving]
  - Coma scale abnormal [Recovering/Resolving]
  - Mydriasis [Recovering/Resolving]
  - Hypertonia [Recovering/Resolving]
  - Disorientation [Recovering/Resolving]
  - Clonus [Recovering/Resolving]
  - Hyperhidrosis [Recovering/Resolving]
  - Reflexes abnormal [Recovering/Resolving]
  - Pulse abnormal [Recovering/Resolving]
  - Confusional state [Recovering/Resolving]
  - Serotonin syndrome [Recovering/Resolving]
  - Agitation [Recovering/Resolving]
